FAERS Safety Report 5162366-7 (Version None)
Quarter: 2006Q4

REPORT INFORMATION
  Report Type: 
  Country: None (occurrence: None)
  Receive Date: 20061130
  Receipt Date: 20061128
  Transmission Date: 20070319
  Serious: Yes (Hospitalization)
  Sender: FDA-Public Use
  Company Number: BG-ROXANE LABORATORIES, INC-2006-BP-13862RO

PATIENT
  Age: 20 Year
  Sex: Male

DRUGS (4)
  1. LEUCOVORIN CALCIUM [Suspect]
     Indication: COLON CANCER METASTATIC
  2. FLUOROURACIL [Suspect]
     Indication: COLON CANCER METASTATIC
  3. IRINOTECAN HCL [Suspect]
     Indication: COLON CANCER METASTATIC
  4. BEVACIZUMAB [Suspect]
     Indication: COLON CANCER METASTATIC

REACTIONS (5)
  - ACUTE ABDOMEN [None]
  - ESCHERICHIA INFECTION [None]
  - HYPERTRIGLYCERIDAEMIA [None]
  - IMPAIRED HEALING [None]
  - PERITONITIS BACTERIAL [None]
